FAERS Safety Report 23075117 (Version 1)
Quarter: 2023Q4

REPORT INFORMATION
  Report Type: Spontaneous
  Country: US (occurrence: US)
  Receive Date: 20231017
  Receipt Date: 20231017
  Transmission Date: 20240110
  Serious: Yes (Other)
  Sender: FDA-Public Use
  Company Number: US-PFIZER INC-202300325140

PATIENT
  Age: 62 Year
  Sex: Male

DRUGS (4)
  1. XELJANZ [Suspect]
     Active Substance: TOFACITINIB CITRATE
     Dosage: TOOK ONE-HALF (1/2) TABLET ONE TIME DAILY (TOTAL DOSE 5 MG PER DAY)
     Route: 048
     Dates: start: 201609
  2. VERAPAMIL HYDROCHLORIDE [Concomitant]
     Active Substance: VERAPAMIL HYDROCHLORIDE
     Dosage: 240 MG,VERAPAMIL ER
  3. HYDROXYCHLOROQUINE SULFATE [Concomitant]
     Active Substance: HYDROXYCHLOROQUINE SULFATE
     Dosage: 200 MG
  4. METHYLPREDNISOLONE [Concomitant]
     Active Substance: METHYLPREDNISOLONE
     Dosage: 4 MG

REACTIONS (2)
  - Rheumatoid arthritis [Unknown]
  - Hypertension [Unknown]

NARRATIVE: CASE EVENT DATE: 20230801
